FAERS Safety Report 8459616 (Version 5)
Quarter: 2013Q1

REPORT INFORMATION
  Report Type: Report from Study
  Country: JP (occurrence: JP)
  Receive Date: 20120314
  Receipt Date: 20130104
  Transmission Date: 20140127
  Serious: Yes (Life-Threatening, Hospitalization, Other)
  Sender: FDA-Public Use
  Company Number: JP-TEVA-2011002719

PATIENT
  Age: 79 Year
  Sex: Female
  Weight: 40 kg

DRUGS (10)
  1. TREANDA [Suspect]
     Indication: MANTLE CELL LYMPHOMA
     Route: 042
     Dates: start: 20110201
  2. RITUXIMAB [Suspect]
     Indication: MANTLE CELL LYMPHOMA
     Route: 042
     Dates: start: 20110302
  3. FAMOTIDINE [Concomitant]
  4. ISOSORBIDE DINITRATE [Concomitant]
  5. MIANSERIN HYDROCHLORIDE [Concomitant]
  6. ETIZOLAM [Concomitant]
  7. PRIMIDONE [Concomitant]
  8. GARENOXACIN [Concomitant]
     Dates: start: 20110201, end: 20110405
  9. FLUCONAZOLE [Concomitant]
     Dates: start: 20110201
  10. FLUNITRAZEPAM [Concomitant]
     Dates: start: 20110228

REACTIONS (9)
  - Hepatitis B [Recovered/Resolved]
  - Neutrophil count decreased [Recovered/Resolved]
  - Liver disorder [Recovered/Resolved]
  - Pseudomembranous colitis [Recovered/Resolved]
  - White blood cell count decreased [Recovered/Resolved]
  - Lymphocyte count decreased [Not Recovered/Not Resolved]
  - Herpes zoster [Recovering/Resolving]
  - Diarrhoea [Recovered/Resolved]
  - Hypokalaemia [Recovered/Resolved]
